FAERS Safety Report 24173757 (Version 1)
Quarter: 2024Q3

REPORT INFORMATION
  Report Type: Spontaneous
  Country: CA (occurrence: CA)
  Receive Date: 20240805
  Receipt Date: 20240805
  Transmission Date: 20241016
  Serious: Yes (Other)
  Sender: AUROBINDO
  Company Number: CA-AUROBINDO-AUR-APL-2024-038654

PATIENT
  Age: 81 Year
  Sex: Female

DRUGS (15)
  1. AMOXICILLIN [Suspect]
     Active Substance: AMOXICILLIN
     Indication: Product used for unknown indication
     Dosage: UNK
     Route: 065
  2. ACETAMINOPHEN [Suspect]
     Active Substance: ACETAMINOPHEN
     Indication: Pain
     Dosage: UNK
     Route: 065
  3. ACETAMINOPHEN\CODEINE PHOSPHATE [Suspect]
     Active Substance: ACETAMINOPHEN\CODEINE PHOSPHATE
     Indication: Product used for unknown indication
     Dosage: UNK
     Route: 065
  4. ACTEMRA [Suspect]
     Active Substance: TOCILIZUMAB
     Indication: Rheumatoid arthritis
     Dosage: 162 MILLIGRAM, EVERY WEEK (1 EVERY 1 WEEK)
     Route: 058
  5. ACTEMRA [Suspect]
     Active Substance: TOCILIZUMAB
     Indication: Rheumatoid arthritis
     Dosage: 162 MILLIGRAM, EVERY WEEK (1 EVERY 1 WEEKS)
     Route: 058
  6. ACTEMRA [Suspect]
     Active Substance: TOCILIZUMAB
     Dosage: 162 MILLIGRAM (1 EVERY 2 WEEKS)
     Route: 058
  7. AMIODARONE [Suspect]
     Active Substance: AMIODARONE
     Indication: Product used for unknown indication
     Dosage: UNK
     Route: 065
  8. LYRICA [Suspect]
     Active Substance: PREGABALIN
     Indication: Neuralgia
     Dosage: 50 MILLIGRAM, ONCE A DAY (1 EVERY 1 DAYS)
     Route: 065
  9. ASPIRIN [Concomitant]
     Active Substance: ASPIRIN
     Indication: Product used for unknown indication
     Dosage: UNK
     Route: 065
  10. ATACAND [Concomitant]
     Active Substance: CANDESARTAN CILEXETIL
     Indication: Product used for unknown indication
     Dosage: 8 MILLIGRAM, ONCE A DAY (1 EVERY 1 DAYS)
     Route: 048
  11. CHLORTHALIDONE [Concomitant]
     Active Substance: CHLORTHALIDONE
     Indication: Product used for unknown indication
     Dosage: UNK
     Route: 065
  12. ELIQUIS [Concomitant]
     Active Substance: APIXABAN
     Indication: Product used for unknown indication
     Dosage: UNK
     Route: 065
  13. IBUPROFEN [Concomitant]
     Active Substance: IBUPROFEN
     Indication: Product used for unknown indication
     Dosage: UNK
     Route: 065
  14. METOPROLOL TARTRATE [Concomitant]
     Active Substance: METOPROLOL TARTRATE
     Indication: Product used for unknown indication
     Dosage: UNK
     Route: 065
  15. TYLENOL [Concomitant]
     Active Substance: ACETAMINOPHEN
     Indication: Product used for unknown indication
     Dosage: UNK
     Route: 065

REACTIONS (38)
  - Raynaud^s phenomenon [Unknown]
  - Alanine aminotransferase increased [Unknown]
  - Aortic arteriosclerosis [Unknown]
  - Arrhythmia [Unknown]
  - Atrial fibrillation [Unknown]
  - Blood creatinine increased [Unknown]
  - Blood pressure diastolic decreased [Unknown]
  - Bronchiectasis [Unknown]
  - Cardiac murmur [Unknown]
  - Diarrhoea [Unknown]
  - Dyspepsia [Unknown]
  - Eye infection [Unknown]
  - Foot deformity [Unknown]
  - Gastrointestinal disorder [Unknown]
  - Headache [Unknown]
  - Hyperkeratosis [Unknown]
  - Hypertension [Unknown]
  - Hypothyroidism [Unknown]
  - Infection [Unknown]
  - Inguinal hernia [Unknown]
  - Kyphosis [Unknown]
  - Localised infection [Unknown]
  - Lung hyperinflation [Unknown]
  - Neuralgia [Unknown]
  - Nodule [Unknown]
  - Periorbital swelling [Unknown]
  - Pulmonary oedema [Unknown]
  - Rheumatoid arthritis [Unknown]
  - Scoliosis [Unknown]
  - Sepsis [Unknown]
  - Sinusitis [Unknown]
  - Tachyarrhythmia [Unknown]
  - Tachycardia [Unknown]
  - Tenosynovitis [Unknown]
  - Ulcer [Unknown]
  - Urinary tract infection [Unknown]
  - Drug ineffective [Unknown]
  - Drug intolerance [Unknown]
